FAERS Safety Report 19037317 (Version 1)
Quarter: 2021Q1

REPORT INFORMATION
  Report Type: Spontaneous
  Country: US (occurrence: US)
  Receive Date: 20210319
  Receipt Date: 20210319
  Transmission Date: 20210420
  Serious: Yes (Life-Threatening, Other)
  Sender: FDA-Public Use
  Company Number: None

PATIENT
  Age: 72 Year
  Sex: Male
  Weight: 95.71 kg

DRUGS (1)
  1. IODIXANOL (IODIXANOL 320MG/ML INJ) [Suspect]
     Active Substance: IODIXANOL
     Indication: COMPUTERISED TOMOGRAM
     Route: 042
     Dates: start: 20200618, end: 20200618

REACTIONS (2)
  - Hyperhidrosis [None]
  - Anaphylactic reaction [None]

NARRATIVE: CASE EVENT DATE: 20200618
